FAERS Safety Report 8801762 (Version 1)
Quarter: 2012Q4

REPORT INFORMATION
  Report Type: 
  Country: US (occurrence: US)
  Receive Date: 20120921
  Receipt Date: 20120921
  Transmission Date: 20130627
  Serious: No
  Sender: FDA-Public Use
  Company Number: US-PFIZER INC-2012231146

PATIENT
  Age: 69 Year
  Sex: Female

DRUGS (3)
  1. NORVASC [Suspect]
     Dosage: UNK
  2. LETAIRIS [Suspect]
     Indication: PULMONARY HYPERTENSION
     Dosage: 10 mg, UNK
     Route: 048
     Dates: start: 20120809
  3. LETAIRIS [Suspect]
     Dosage: 5 mg, UNK
     Route: 048

REACTIONS (8)
  - Ear infection [Recovered/Resolved]
  - Vertigo [Recovered/Resolved]
  - Dizziness [Not Recovered/Not Resolved]
  - Fluid retention [Not Recovered/Not Resolved]
  - Weight increased [Unknown]
  - Sinusitis [Recovered/Resolved]
  - Abdominal discomfort [Recovered/Resolved]
  - Blood pressure decreased [Unknown]
